FAERS Safety Report 8823376 (Version 3)
Quarter: 2012Q4

REPORT INFORMATION
  Report Type: 
  Country: US (occurrence: US)
  Receive Date: 20121003
  Receipt Date: 20121018
  Transmission Date: 20130627
  Serious: Yes (Hospitalization)
  Sender: FDA-Public Use
  Company Number: US-009507513-1209USA007968

PATIENT
  Age: 72 Year
  Sex: Female

DRUGS (2)
  1. PRIMAXIN I.V. [Suspect]
     Indication: INFECTION
     Dosage: UNK
     Route: 042
     Dates: start: 20120830, end: 20120912
  2. PRIMAXIN I.V. [Suspect]
     Indication: PNEUMONIA

REACTIONS (4)
  - Rhabdomyolysis [Unknown]
  - Blood creatine phosphokinase increased [Unknown]
  - Myalgia [Unknown]
  - Polymyositis [Unknown]
